FAERS Safety Report 8192756-X (Version None)
Quarter: 2012Q1

REPORT INFORMATION
  Report Type: 
  Country: None (occurrence: None)
  Receive Date: 20120308
  Receipt Date: 20120302
  Transmission Date: 20120608
  Serious: No
  Sender: FDA-Public Use
  Company Number: US-PFIZER INC-2012056728

PATIENT
  Sex: Male

DRUGS (6)
  1. POTASSIUM PENICILLIN G [Suspect]
     Dosage: UNK
  2. VERAPAMIL HCL [Suspect]
     Dosage: UNK
  3. HYDROCODONE BITARTRATE [Suspect]
     Dosage: UNK
  4. LIPITOR [Suspect]
     Dosage: 20 MG, GOD
  5. LISINOPRIL [Suspect]
     Dosage: UNK
  6. CIALIS [Suspect]
     Dosage: UNK

REACTIONS (1)
  - DRUG HYPERSENSITIVITY [None]
